FAERS Safety Report 4625902-2 (Version None)
Quarter: 2005Q1

REPORT INFORMATION
  Report Type: 
  Country: None (occurrence: None)
  Receive Date: 20050330
  Receipt Date: 20050319
  Transmission Date: 20050727
  Serious: Yes (Hospitalization, Other)
  Sender: FDA-Public Use
  Company Number: 2004242987US

PATIENT
  Age: 60 Year
  Sex: Male
  Weight: 195 kg

DRUGS (3)
  1. CELEBREX [Suspect]
     Indication: BACK PAIN
     Dosage: 200 MG (200 MG, 1 IN 1 D)
     Dates: start: 19990101
  2. BEXTRA [Suspect]
     Indication: ILL-DEFINED DISORDER
     Dosage: (AS NEEDED)
  3. ALLOPURINOL [Concomitant]

REACTIONS (5)
  - ARTHRALGIA [None]
  - BLOOD UREA INCREASED [None]
  - DEEP VEIN THROMBOSIS [None]
  - HEARING IMPAIRED [None]
  - RESPIRATORY RATE INCREASED [None]
